FAERS Safety Report 7973302-X (Version None)
Quarter: 2011Q4

REPORT INFORMATION
  Report Type: 
  Country: None (occurrence: None)
  Receive Date: 20111213
  Receipt Date: 20111130
  Transmission Date: 20120403
  Serious: Yes (Other)
  Sender: FDA-Public Use
  Company Number: IE-JNJFOC-20111204171

PATIENT
  Age: 45 Year
  Sex: Female

DRUGS (1)
  1. PALEXIA [Suspect]
     Indication: BACK PAIN
     Route: 048
     Dates: start: 20111027, end: 20111102

REACTIONS (1)
  - ANURIA [None]
